FAERS Safety Report 7747569-7 (Version None)
Quarter: 2011Q3

REPORT INFORMATION
  Report Type: 
  Country: None (occurrence: None)
  Receive Date: 20110913
  Receipt Date: 20110831
  Transmission Date: 20111222
  Serious: Yes (Other)
  Sender: FDA-Public Use
  Company Number: ES-ELI_LILLY_AND_COMPANY-ES201109001497

PATIENT
  Age: 73 Year
  Sex: Male

DRUGS (2)
  1. ALIMTA [Suspect]
     Indication: LUNG NEOPLASM MALIGNANT
     Dosage: UNK
     Route: 042
     Dates: start: 20110826
  2. GELOCATIL [Concomitant]
     Indication: PAIN
     Dosage: 1 G, PRN
     Route: 048

REACTIONS (2)
  - MALAISE [None]
  - PYREXIA [None]
